FAERS Safety Report 26135563 (Version 1)
Quarter: 2025Q4

REPORT INFORMATION
  Report Type: Report from Study
  Country: US (occurrence: US)
  Receive Date: 20251209
  Receipt Date: 20251209
  Transmission Date: 20260118
  Serious: Yes (Hospitalization)
  Sender: NOVARTIS
  Company Number: US-002147023-NVSC2024US238478

PATIENT
  Age: 78 Year
  Sex: Female

DRUGS (2)
  1. SCEMBLIX [Suspect]
     Active Substance: ASCIMINIB HYDROCHLORIDE
     Indication: Product used for unknown indication
     Dosage: 40 MG, BID
     Route: 048
     Dates: start: 20220422
  2. SCEMBLIX [Suspect]
     Active Substance: ASCIMINIB HYDROCHLORIDE
     Dosage: 40 MG, QD
     Route: 048

REACTIONS (4)
  - Decreased appetite [Unknown]
  - Dysphagia [Unknown]
  - Constipation [Unknown]
  - Fall [Unknown]

NARRATIVE: CASE EVENT DATE: 20241208
